FAERS Safety Report 9071627 (Version 1)
Quarter: 2013Q1

REPORT INFORMATION
  Report Type: Spontaneous
  Country: US (occurrence: US)
  Receive Date: 20130206
  Receipt Date: 20130206
  Transmission Date: 20140127
  Serious: No
  Sender: FDA-Public Use
  Company Number: US-ALLERGAN-1213139US

PATIENT
  Age: 61 Year
  Sex: Female

DRUGS (6)
  1. RESTASIS? [Suspect]
     Indication: DRY EYE
     Dosage: 1 GTT, BID
     Route: 047
  2. HORMONE REPLACEMENT THERAPY PILLS [Concomitant]
     Indication: PRODUCT USED FOR UNKNOWN INDICATION
  3. CHOLESTEROL [Concomitant]
     Indication: PRODUCT USED FOR UNKNOWN INDICATION
  4. NORTRIPTYLINE [Concomitant]
     Indication: ANTIDEPRESSANT THERAPY
  5. PROTON PUMP INHIBITORS [Concomitant]
     Indication: GASTRIC PH DECREASED
  6. PRESERVATIVE FREE REFRESH [Concomitant]
     Indication: DRY EYE

REACTIONS (1)
  - Eye colour change [Not Recovered/Not Resolved]
